FAERS Safety Report 25471939 (Version 2)
Quarter: 2025Q3

REPORT INFORMATION
  Report Type: Spontaneous
  Country: CA (occurrence: CA)
  Receive Date: 20250624
  Receipt Date: 20250811
  Transmission Date: 20251020
  Serious: Yes (Other)
  Sender: SANOFI AVENTIS
  Company Number: CA-SA-2025SA176292

PATIENT
  Age: 65 Year
  Sex: Male
  Weight: 85 kg

DRUGS (4)
  1. INSULIN ASPART [Suspect]
     Active Substance: INSULIN ASPART
     Indication: Diabetes mellitus
     Dosage: 11U AM, 21U PM , BID
     Route: 058
     Dates: start: 20240124, end: 20240627
  2. ASPIRIN [Concomitant]
     Active Substance: ASPIRIN
     Route: 058
     Dates: start: 2015
  3. RAMIPRIL [Concomitant]
     Active Substance: RAMIPRIL
     Dates: start: 2015
  4. ATORVASTATIN [Concomitant]
     Active Substance: ATORVASTATIN
     Route: 048
     Dates: start: 2015

REACTIONS (2)
  - Malaise [Recovered/Resolved]
  - Product ineffective [Unknown]

NARRATIVE: CASE EVENT DATE: 20240124
